FAERS Safety Report 25751040 (Version 1)
Quarter: 2025Q3

REPORT INFORMATION
  Report Type: Spontaneous
  Country: EU (occurrence: EU)
  Receive Date: 20250902
  Receipt Date: 20250902
  Transmission Date: 20251020
  Serious: Yes (Other)
  Sender: BAUSCH AND LOMB
  Company Number: None

PATIENT
  Age: 12 Year
  Sex: Male
  Weight: 41.5 kg

DRUGS (5)
  1. ACYCLOVIR [Suspect]
     Active Substance: ACYCLOVIR
     Indication: Herpes zoster
     Route: 042
     Dates: start: 20250712, end: 20250717
  2. ACYCLOVIR [Suspect]
     Active Substance: ACYCLOVIR
     Route: 042
  3. RUXOLITINIB [Suspect]
     Active Substance: RUXOLITINIB
     Indication: Still^s disease
     Route: 048
     Dates: start: 20250522
  4. SOLUPRED [Concomitant]
     Indication: Still^s disease
     Route: 048
     Dates: start: 20230610
  5. ILARIS [Concomitant]
     Active Substance: CANAKINUMAB
     Indication: Still^s disease
     Route: 058

REACTIONS (1)
  - Superficial vein thrombosis [Unknown]

NARRATIVE: CASE EVENT DATE: 20250715
